FAERS Safety Report 14239550 (Version 2)
Quarter: 2017Q4

REPORT INFORMATION
  Report Type: Spontaneous
  Country: HR (occurrence: HR)
  Receive Date: 20171130
  Receipt Date: 20171222
  Transmission Date: 20180321
  Serious: No
  Sender: FDA-Public Use
  Company Number: HR-BAYER-2017-229103

PATIENT
  Age: 76 Year
  Sex: Female

DRUGS (5)
  1. ASPIRIN PROTECT 100 MG [Suspect]
     Active Substance: ASPIRIN
     Dosage: UNK
  2. METFORMIN W/SITAGLIPTIN [Concomitant]
     Active Substance: METFORMIN\SITAGLIPTIN PHOSPHATE
     Dosage: 1 DF, BID
  3. RAMIPRIL/AMLODIPINE [Concomitant]
     Dosage: UNK
  4. RAMIPRIL/AMLODIPINE [Concomitant]
     Dosage: UNK
  5. BISOPROLOL [Concomitant]
     Active Substance: BISOPROLOL
     Dosage: 2.5 MG, UNK

REACTIONS (1)
  - Intentional product use issue [None]
